FAERS Safety Report 7648408-5 (Version None)
Quarter: 2011Q3

REPORT INFORMATION
  Report Type: 
  Country: None (occurrence: None)
  Receive Date: 20110801
  Receipt Date: 20110721
  Transmission Date: 20111222
  Serious: Yes (Hospitalization)
  Sender: FDA-Public Use
  Company Number: FR-ASTRAZENECA-2011SE43956

PATIENT
  Age: 28661 Day
  Sex: Male

DRUGS (3)
  1. PREVISCAN [Suspect]
     Indication: VENOUS THROMBOSIS
     Dosage: START DATE BETWEEN 10 TO 25-MAY-2011 10 MG DAILY
     Route: 048
     Dates: end: 20110625
  2. NEXIUM [Suspect]
     Indication: GASTRODUODENAL ULCER
     Dosage: START DATE BETWEEN 10 TO 25-MAY-2011 10 MG DAILY
     Route: 048
     Dates: end: 20110625
  3. BISOPROLOL FUMARATE [Suspect]
     Indication: CARDIAC DISORDER
     Dosage: START DATE BETWEEN 10 TO 25-MAY-2011 5 MG DAILY
     Route: 048
     Dates: end: 20110625

REACTIONS (1)
  - DRUG RASH WITH EOSINOPHILIA AND SYSTEMIC SYMPTOMS [None]
